FAERS Safety Report 25956290 (Version 1)
Quarter: 2025Q4

REPORT INFORMATION
  Report Type: Report from Study
  Country: CA (occurrence: CA)
  Receive Date: 20251024
  Receipt Date: 20251024
  Transmission Date: 20260118
  Serious: Yes (Other)
  Sender: ABBVIE
  Company Number: CA-ABBVIE-6513444

PATIENT
  Age: 43 Year
  Sex: Female

DRUGS (1)
  1. RINVOQ [Suspect]
     Active Substance: UPADACITINIB
     Indication: Crohn^s disease
     Route: 048
     Dates: start: 20251019

REACTIONS (4)
  - Ileostomy [Unknown]
  - Product residue present [Recovered/Resolved]
  - Abdominal pain [Recovering/Resolving]
  - Stoma creation [Unknown]

NARRATIVE: CASE EVENT DATE: 20251001
